FAERS Safety Report 7898538-8 (Version None)
Quarter: 2011Q4

REPORT INFORMATION
  Report Type: 
  Country: None (occurrence: None)
  Receive Date: 20111101
  Receipt Date: 20110722
  Transmission Date: 20120403
  Serious: Yes (Other)
  Sender: FDA-Public Use
  Company Number: 286165USA

PATIENT
  Sex: Female

DRUGS (9)
  1. BECLOMETHASONE DIPROPIONATE [Suspect]
     Dosage: RESPIRATORY (INHALATION)
     Route: 055
  2. NORTRIPTYLINE HCL [Concomitant]
  3. METFORMIN HCL [Concomitant]
  4. GLIPIZIDE [Concomitant]
  5. LISINOPRIL [Concomitant]
  6. NADOLOL [Concomitant]
  7. SIMVASTATIN [Concomitant]
  8. FLUOXETINE HCL [Concomitant]
  9. SIMVASTATIN [Concomitant]

REACTIONS (2)
  - PHARYNGEAL OEDEMA [None]
  - DYSPHAGIA [None]
